FAERS Safety Report 5081570-X (Version None)
Quarter: 2006Q3

REPORT INFORMATION
  Report Type: 
  Country: None (occurrence: None)
  Receive Date: 20060811
  Receipt Date: 20060728
  Transmission Date: 20061208
  Serious: Yes (Death)
  Sender: FDA-Public Use
  Company Number: 8018150

PATIENT
  Age: 66 Year
  Sex: Male

DRUGS (5)
  1. LORTAB [Suspect]
     Indication: MUSCULOSKELETAL CHEST PAIN
     Dosage: PO
     Route: 048
     Dates: start: 20030926, end: 20030927
  2. PERCOCET [Suspect]
     Indication: MUSCULOSKELETAL CHEST PAIN
     Dosage: PRN PO
     Route: 048
     Dates: start: 20030921, end: 20030925
  3. ZOCOR [Suspect]
     Indication: HYPERCHOLESTEROLAEMIA
     Dosage: PO
     Route: 048
  4. ALCOHOL [Suspect]
     Dosage: PO
     Route: 048
  5. ANTIHYPERTENSIVE [Concomitant]

REACTIONS (8)
  - ALCOHOL PROBLEM [None]
  - BLOOD ALCOHOL INCREASED [None]
  - BLOOD ALKALINE PHOSPHATASE INCREASED [None]
  - BLOOD BILIRUBIN INCREASED [None]
  - HEPATIC FAILURE [None]
  - IMPAIRED DRIVING ABILITY [None]
  - RIB FRACTURE [None]
  - ROAD TRAFFIC ACCIDENT [None]
